FAERS Safety Report 19779275 (Version 1)
Quarter: 2021Q3

REPORT INFORMATION
  Report Type: Spontaneous
  Country: US (occurrence: US)
  Receive Date: 20210831
  Receipt Date: 20210831
  Transmission Date: 20211014
  Serious: Yes (Hospitalization)
  Sender: FDA-Public Use
  Company Number: None

PATIENT
  Age: 57 Year
  Sex: Female
  Weight: 60.5 kg

DRUGS (1)
  1. ABECMA [Suspect]
     Active Substance: IDECABTAGENE VICLEUCEL

REACTIONS (17)
  - Asthenia [None]
  - Myalgia [None]
  - Transaminases increased [None]
  - Troponin increased [None]
  - Dysphagia [None]
  - Communication disorder [None]
  - Memory impairment [None]
  - Lethargy [None]
  - Confusional state [None]
  - Pyrexia [None]
  - N-terminal prohormone brain natriuretic peptide increased [None]
  - Nausea [None]
  - Malaise [None]
  - Nephropathy toxic [None]
  - Somnolence [None]
  - Depressed level of consciousness [None]
  - Fatigue [None]

NARRATIVE: CASE EVENT DATE: 20210625
